FAERS Safety Report 5306013-X (Version None)
Quarter: 2007Q2

REPORT INFORMATION
  Report Type: 
  Country: None (occurrence: None)
  Receive Date: 20070420
  Receipt Date: 20070420
  Transmission Date: 20071010
  Serious: No
  Sender: FDA-Public Use
  Company Number: None

PATIENT
  Sex: Female
  Weight: 57.7 kg

DRUGS (4)
  1. ELOXATIN [Suspect]
     Dosage: 139 MG
  2. FLUOROURACIL [Suspect]
     Dosage: 4592 MG
  3. BEVACIZUMAB (RHUMAB VEGF) [Suspect]
     Dosage: 286 MG
  4. LEUCOVORIN CLACIUM [Suspect]
     Dosage: 655 MG

REACTIONS (1)
  - FATIGUE [None]
